FAERS Safety Report 9562936 (Version 1)
Quarter: 2013Q3

REPORT INFORMATION
  Report Type: Spontaneous
  Country: GB (occurrence: US)
  Receive Date: 20130927
  Receipt Date: 20130927
  Transmission Date: 20140515
  Serious: Yes (Disabling)
  Sender: FDA-Public Use
  Company Number: US-FRI-1000049093

PATIENT
  Age: 48 Year
  Sex: Female

DRUGS (11)
  1. CELEXA [Suspect]
     Dosage: 10 MG
     Dates: start: 20100325, end: 20100512
  2. CELEXA [Suspect]
     Dosage: 20 MG
     Dates: start: 20100513, end: 20100629
  3. CELEXA [Suspect]
     Dosage: 10 MG
     Dates: start: 20100630, end: 20100707
  4. BEVACIZUMAB [Suspect]
     Indication: HER-2 POSITIVE BREAST CANCER
     Route: 042
     Dates: start: 20100218, end: 20100806
  5. TRASTUZUMAB [Suspect]
     Indication: HER-2 POSITIVE BREAST CANCER
     Route: 042
     Dates: start: 20100218
  6. TRASTUZUMAB [Suspect]
     Route: 042
     Dates: start: 20100311, end: 20100806
  7. DOCETAXEL [Suspect]
     Indication: HER-2 POSITIVE BREAST CANCER
     Route: 042
     Dates: start: 20100218
  8. CARBOPLATIN [Suspect]
     Indication: HER-2 POSITIVE BREAST CANCER
     Route: 042
     Dates: start: 20100218
  9. ZANTAC [Concomitant]
     Dates: start: 20100223, end: 20100308
  10. ATIVAN [Concomitant]
     Dates: start: 20100204
  11. PRILOSEC [Concomitant]
     Dates: start: 20100308

REACTIONS (6)
  - Dysphonia [Recovered/Resolved]
  - Cough [Recovered/Resolved]
  - Hyperkeratosis [Unknown]
  - Seasonal allergy [Unknown]
  - Fungal infection [Unknown]
  - Chlamydial infection [Unknown]
